FAERS Safety Report 19853760 (Version 4)
Quarter: 2021Q4

REPORT INFORMATION
  Report Type: Spontaneous
  Country: IT (occurrence: IT)
  Receive Date: 20210920
  Receipt Date: 20211028
  Transmission Date: 20220303
  Serious: Yes (Life-Threatening, Hospitalization, Other)
  Sender: FDA-Public Use
  Company Number: IT-CELLTRION INC.-2021IT012534

PATIENT

DRUGS (20)
  1. RITUXIMAB [Suspect]
     Active Substance: RITUXIMAB
     Indication: Diffuse large B-cell lymphoma
     Dosage: 375 MG/M2 EVERY 21 DAYS
     Route: 041
     Dates: start: 201904, end: 201912
  2. RITUXIMAB [Suspect]
     Active Substance: RITUXIMAB
     Indication: Acute lymphocytic leukaemia
     Dosage: 375 MG/M2
     Route: 065
     Dates: start: 201904
  3. RITUXIMAB [Suspect]
     Active Substance: RITUXIMAB
     Indication: Double hit lymphoma
     Dosage: 375 MG/M2 EVERY 21 WEEKS (ADDITIONAL TWO DOSES AFTER COMPLETION OF THE LAST CYCLE)
     Route: 065
     Dates: end: 201912
  4. RITUXIMAB [Suspect]
     Active Substance: RITUXIMAB
     Dosage: SIX CYCLES AT 375 MG/M2
  5. METHOTREXATE [Suspect]
     Active Substance: METHOTREXATE
     Indication: Acute lymphocytic leukaemia
     Dosage: SIX CYCLES
     Route: 065
     Dates: start: 201904, end: 201912
  6. METHOTREXATE [Suspect]
     Active Substance: METHOTREXATE
     Indication: Diffuse large B-cell lymphoma
  7. METHOTREXATE [Suspect]
     Active Substance: METHOTREXATE
     Indication: Double hit lymphoma
  8. CYTARABINE [Suspect]
     Active Substance: CYTARABINE
     Indication: Acute lymphocytic leukaemia
     Dosage: SIX CYCLES
     Route: 065
     Dates: start: 201904, end: 201912
  9. CYTARABINE [Suspect]
     Active Substance: CYTARABINE
     Indication: Diffuse large B-cell lymphoma
  10. CYTARABINE [Suspect]
     Active Substance: CYTARABINE
     Indication: Double hit lymphoma
  11. VINCRISTINE [Suspect]
     Active Substance: VINCRISTINE
     Indication: Acute lymphocytic leukaemia
     Dosage: SIX CYCLES
     Route: 065
     Dates: start: 201904, end: 201912
  12. VINCRISTINE [Suspect]
     Active Substance: VINCRISTINE
     Indication: Diffuse large B-cell lymphoma
  13. VINCRISTINE [Suspect]
     Active Substance: VINCRISTINE
     Indication: Double hit lymphoma
  14. ETOPOSIDE [Suspect]
     Active Substance: ETOPOSIDE
     Indication: Acute lymphocytic leukaemia
     Dosage: SIX CYCLES
     Route: 065
     Dates: start: 201904, end: 201912
  15. ETOPOSIDE [Suspect]
     Active Substance: ETOPOSIDE
     Indication: Diffuse large B-cell lymphoma
  16. ETOPOSIDE [Suspect]
     Active Substance: ETOPOSIDE
     Indication: Double hit lymphoma
  17. DEXAMETHASONE [Suspect]
     Active Substance: DEXAMETHASONE
     Indication: Acute lymphocytic leukaemia
     Dosage: SIX CYCLES
     Route: 065
     Dates: start: 201904, end: 201912
  18. DEXAMETHASONE [Suspect]
     Active Substance: DEXAMETHASONE
     Indication: Diffuse large B-cell lymphoma
  19. DEXAMETHASONE [Suspect]
     Active Substance: DEXAMETHASONE
     Indication: Double hit lymphoma
  20. COVID-19 CONVALESCENT PLASMA [Concomitant]
     Active Substance: COVID-19 CONVALESCENT PLASMA
     Indication: COVID-19
     Dosage: UNK
     Route: 041
     Dates: start: 20200616

REACTIONS (5)
  - Respiratory distress [Recovered/Resolved]
  - Aspergillus infection [Recovered/Resolved]
  - COVID-19 [Recovered/Resolved]
  - Urinary tract infection [Recovered/Resolved]
  - Off label use [Unknown]

NARRATIVE: CASE EVENT DATE: 20200101
